FAERS Safety Report 10431492 (Version 2)
Quarter: 2014Q4

REPORT INFORMATION
  Report Type: Spontaneous
  Country: US (occurrence: None)
  Receive Date: 20140903
  Receipt Date: 20141117
  Transmission Date: 20150528
  Serious: Yes (Other)
  Sender: FDA-Public Use
  Company Number: ADR-2014-01571

PATIENT
  Age: 61 Year
  Sex: Female

DRUGS (5)
  1. BUPIVACAINE [Suspect]
     Active Substance: BUPIVACAINE
  2. BACLOFEN INTRATHECAL [Suspect]
     Active Substance: BACLOFEN
     Indication: PAIN
  3. MORPHINE INTRATHECAL [Suspect]
     Active Substance: MORPHINE
  4. CLONIDINE. [Suspect]
     Active Substance: CLONIDINE
  5. DILAUDID [Suspect]
     Active Substance: HYDROMORPHONE HYDROCHLORIDE

REACTIONS (3)
  - Cardiac disorder [None]
  - Device-device incompatibility [None]
  - Medical device complication [None]

NARRATIVE: CASE EVENT DATE: 20140821
